FAERS Safety Report 8937994 (Version 2)
Quarter: 2013Q1

REPORT INFORMATION
  Report Type: Spontaneous
  Country: FR (occurrence: None)
  Receive Date: 20121123
  Receipt Date: 20121203
  Transmission Date: 20140127
  Serious: Yes (Hospitalization)
  Sender: FDA-Public Use
  Company Number: DSA_60958_2012

PATIENT
  Age: 84 Year
  Sex: Female

DRUGS (4)
  1. FLAGYL [Suspect]
     Indication: SALMONELLOSIS
     Dosage: (DF)
     Dates: start: 20120809, end: 20120816
  2. CLAFORAN [Suspect]
     Indication: SALMONELLOSIS
     Dosage: (DF)
     Dates: start: 20120809, end: 20120816
  3. AMIKACIN [Suspect]
     Indication: SALMONELLOSIS
     Dosage: (DF)
     Dates: start: 20120809, end: 20120814
  4. OFLOCET /00731801/ [Concomitant]

REACTIONS (9)
  - Thrombocytopenia [None]
  - Oedema peripheral [None]
  - Rales [None]
  - Renal failure chronic [None]
  - Psoas abscess [None]
  - Intervertebral discitis [None]
  - Pulmonary embolism [None]
  - Splenic infarction [None]
  - Platelet count increased [None]
